FAERS Safety Report 5279379-7 (Version None)
Quarter: 2007Q1

REPORT INFORMATION
  Report Type: 
  Country: None (occurrence: None)
  Receive Date: 20070322
  Receipt Date: 20070315
  Transmission Date: 20070707
  Serious: Yes (Other)
  Sender: FDA-Public Use
  Company Number: 062-C5013-07030866

PATIENT
  Sex: Male

DRUGS (2)
  1. CC-5013 (LENALIDOMIDE) (CAPSULES) [Suspect]
     Indication: MULTIPLE MYELOMA
     Dosage: 10 MG, 1 IN 2 D, ORAL
     Route: 048
  2. CC-5013 (LENALIDOMIDE) (CAPSULES) [Suspect]
     Indication: MYELODYSPLASTIC SYNDROME
     Dosage: 10 MG, 1 IN 2 D, ORAL
     Route: 048

REACTIONS (3)
  - EPISTAXIS [None]
  - NASAL MUCOSAL DISORDER [None]
  - THROMBOCYTOPENIA [None]
